FAERS Safety Report 9974061 (Version 1)
Quarter: 2014Q1

REPORT INFORMATION
  Report Type: Spontaneous
  Country: US (occurrence: US)
  Receive Date: 20140306
  Receipt Date: 20140306
  Transmission Date: 20141002
  Serious: Yes (Hospitalization)
  Sender: FDA-Public Use
  Company Number: US-GLAXOSMITHKLINE-A1062345A

PATIENT
  Sex: Female

DRUGS (12)
  1. SEREVENT [Suspect]
     Indication: ASTHMA
     Dosage: 1PUFF TWICE PER DAY
     Route: 055
  2. PULMICORT [Concomitant]
  3. ACCOLATE [Concomitant]
  4. LIPITOR [Concomitant]
  5. LOTREL [Concomitant]
  6. BYSTOLIC [Concomitant]
  7. CLONIDINE [Concomitant]
  8. NORTRIPTYLINE [Concomitant]
  9. KLONOPIN [Concomitant]
  10. TEGRETOL [Concomitant]
  11. VENTOLIN [Concomitant]
  12. BENEFIBER [Concomitant]

REACTIONS (8)
  - Pneumonia streptococcal [Recovered/Resolved]
  - Sinus operation [Recovered/Resolved]
  - Cataract operation [Unknown]
  - Colitis [Recovered/Resolved]
  - Presyncope [Recovered/Resolved]
  - Hypertension [Recovered/Resolved]
  - Bronchitis [Recovered/Resolved]
  - Asthma [Recovered/Resolved]
